FAERS Safety Report 9241262 (Version 1)
Quarter: 2013Q2

REPORT INFORMATION
  Report Type: Spontaneous
  Country: US (occurrence: US)
  Receive Date: 20130419
  Receipt Date: 20130419
  Transmission Date: 20140414
  Serious: No
  Sender: FDA-Public Use
  Company Number: US-BIOGENIDEC-2013BI034002

PATIENT
  Age: 33 Year
  Sex: Female

DRUGS (14)
  1. TYSABRI [Suspect]
     Indication: MULTIPLE SCLEROSIS
     Route: 042
     Dates: start: 20070802, end: 20090413
  2. AMBIEN [Concomitant]
     Route: 048
  3. AMITIZA [Concomitant]
     Route: 048
  4. BACLOFEN [Concomitant]
     Route: 048
  5. BETASERON [Concomitant]
     Route: 042
  6. CALCIUM +D [Concomitant]
     Route: 048
  7. CYANOCOBALAMINE [Concomitant]
     Route: 048
  8. DIAZEPAM [Concomitant]
     Route: 048
  9. GLUCOSAMINE CHONDROITIN [Concomitant]
     Route: 048
  10. METHADONE [Concomitant]
     Route: 048
  11. MIRALAX [Concomitant]
     Route: 048
  12. MOBIC [Concomitant]
     Route: 048
  13. NARCO [Concomitant]
     Route: 048
  14. PREDNISONE [Concomitant]
     Route: 048

REACTIONS (1)
  - Multiple sclerosis relapse [Unknown]
